FAERS Safety Report 23392456 (Version 2)
Quarter: 2024Q1

REPORT INFORMATION
  Report Type: Report from Study
  Country: US (occurrence: US)
  Receive Date: 20240111
  Receipt Date: 20240115
  Transmission Date: 20240409
  Serious: Yes (Hospitalization, Other)
  Sender: FDA-Public Use
  Company Number: US-ABBVIE-5580019

PATIENT
  Age: 15 Year
  Sex: Male
  Weight: 67 kg

DRUGS (5)
  1. HUMIRA [Suspect]
     Active Substance: ADALIMUMAB
     Indication: Colitis ulcerative
     Dosage: FORM STRENGTH: 80 MILLIGRAM
     Route: 058
     Dates: start: 20231213, end: 20240103
  2. PROGRAF [Concomitant]
     Active Substance: TACROLIMUS
     Indication: Colitis ulcerative
  3. PREDNISONE [Concomitant]
     Active Substance: PREDNISONE
     Indication: Colitis ulcerative
  4. IRON [Concomitant]
     Active Substance: IRON
     Indication: Blood iron decreased
  5. GABAPENTIN [Concomitant]
     Active Substance: GABAPENTIN
     Indication: Pain

REACTIONS (5)
  - Full blood count decreased [Unknown]
  - Abdominal pain [Recovering/Resolving]
  - Pyrexia [Recovered/Resolved]
  - Haematochezia [Recovering/Resolving]
  - Blood iron decreased [Recovering/Resolving]

NARRATIVE: CASE EVENT DATE: 20231201
